FAERS Safety Report 15119435 (Version 1)
Quarter: 2018Q3

REPORT INFORMATION
  Report Type: Spontaneous
  Country: JP (occurrence: JP)
  Receive Date: 20180709
  Receipt Date: 20180709
  Transmission Date: 20181010
  Serious: Yes (Death, Life-Threatening, Other)
  Sender: FDA-Public Use
  Company Number: JP-ACCORD-048400

PATIENT
  Sex: Male

DRUGS (5)
  1. TS?1 [Suspect]
     Active Substance: GIMERACIL\OTERACIL\TEGAFUR
     Indication: GASTRIC CANCER STAGE IV
     Dosage: DAY 1?14, ONCE IN 3 WEEKS
     Dates: start: 201108
  2. FLUOROURACIL. [Suspect]
     Active Substance: FLUOROURACIL
     Indication: GASTRIC CANCER STAGE IV
     Dosage: DAY 1?5, ONCE IN 4 WEEKS
     Dates: start: 200707
  3. IRINOTECAN [Suspect]
     Active Substance: IRINOTECAN
     Indication: GASTRIC CANCER STAGE IV
     Dosage: BI?WEEKLY
     Dates: start: 200810
  4. PACLITAXEL/PACLITAXEL LIPOSOME [Suspect]
     Active Substance: PACLITAXEL
     Indication: GASTRIC CANCER STAGE IV
     Dosage: DAY 8, 15, 22, ONCE IN 4 WEEKS
     Dates: start: 200707
  5. DOCETAXEL. [Suspect]
     Active Substance: DOCETAXEL
     Indication: GASTRIC CANCER STAGE IV
     Dosage: DAY 1, ONCE IN 3 WEEKS
     Dates: start: 201108

REACTIONS (9)
  - Rash [Unknown]
  - Drug ineffective [Unknown]
  - Hepatic function abnormal [Unknown]
  - Renal impairment [None]
  - Malignant neoplasm progression [None]
  - Neuropathy peripheral [Unknown]
  - Fatigue [Unknown]
  - Decreased appetite [Unknown]
  - Gastric cancer [None]

NARRATIVE: CASE EVENT DATE: 2011
